FAERS Safety Report 13387523 (Version 1)
Quarter: 2017Q1

REPORT INFORMATION
  Report Type: Spontaneous
  Country: US (occurrence: US)
  Receive Date: 20170330
  Receipt Date: 20170330
  Transmission Date: 20170429
  Serious: No
  Sender: FDA-Public Use
  Company Number: US-MYLANLABS-2016M1041443

PATIENT
  Age: 62 Year
  Sex: Female

DRUGS (1)
  1. ESTRADIOL TRANSDERMAL SYSTEM [Suspect]
     Active Substance: ESTRADIOL
     Indication: PRODUCT USED FOR UNKNOWN INDICATION
     Dosage: 0.1 MG/QD, CHANGE OW
     Route: 062
     Dates: start: 201609

REACTIONS (2)
  - Wrong technique in product usage process [Not Recovered/Not Resolved]
  - Drug effect variable [Not Recovered/Not Resolved]

NARRATIVE: CASE EVENT DATE: 201609
